FAERS Safety Report 10206972 (Version 1)
Quarter: 2014Q2

REPORT INFORMATION
  Report Type: Spontaneous
  Country: US (occurrence: None)
  Receive Date: 20140528
  Receipt Date: 20140528
  Transmission Date: 20141212
  Serious: Yes (Hospitalization)
  Sender: FDA-Public Use
  Company Number: None

PATIENT
  Age: 36 Year
  Sex: Female
  Weight: 127.01 kg

DRUGS (1)
  1. SIBUTRAMINE [Suspect]
     Indication: WEIGHT INCREASED
     Route: 048
     Dates: start: 20131118, end: 20140126

REACTIONS (8)
  - Malaise [None]
  - Dyspnoea [None]
  - Hyperhidrosis [None]
  - Nausea [None]
  - Abdominal discomfort [None]
  - Dizziness [None]
  - Arrhythmia [None]
  - Activities of daily living impaired [None]
